FAERS Safety Report 6178715-7 (Version None)
Quarter: 2009Q2

REPORT INFORMATION
  Report Type: 
  Country: None (occurrence: None)
  Receive Date: 20090504
  Receipt Date: 20081028
  Transmission Date: 20091009
  Serious: No
  Sender: FDA-Public Use
  Company Number: GB-ALEXION-A200800324

PATIENT

DRUGS (1)
  1. SOLIRIS [Suspect]
     Indication: RENAL TRANSPLANT
     Dosage: 900 MG, SINGLE
     Route: 042
     Dates: start: 20081010, end: 20081010

REACTIONS (1)
  - CYTOMEGALOVIRUS INFECTION [None]
